FAERS Safety Report 7284885-X (Version None)
Quarter: 2011Q1

REPORT INFORMATION
  Report Type: 
  Country: None (occurrence: None)
  Receive Date: 20110204
  Receipt Date: 20110204
  Transmission Date: 20110831
  Serious: Yes (Other)
  Sender: FDA-Public Use
  Company Number: None

PATIENT
  Age: 4 Year
  Sex: Female

DRUGS (2)
  1. CORZALL PLUS LIQUID [Suspect]
     Indication: ANTITUSSIVE THERAPY
     Dosage: 2.5 ML/4 HOURS/ ORAL
     Route: 048
  2. CORZALL PLUS LIQUID [Suspect]
     Indication: ANTIALLERGIC THERAPY
     Dosage: 2.5 ML/4 HOURS/ ORAL
     Route: 048

REACTIONS (7)
  - SOMNOLENCE [None]
  - VOMITING [None]
  - PRURITUS [None]
  - ACCIDENTAL DRUG INTAKE BY CHILD [None]
  - PARAESTHESIA [None]
  - OVERDOSE [None]
  - FAILURE OF CHILD RESISTANT MECHANISM FOR PHARMACEUTICAL PRODUCT [None]
